FAERS Safety Report 7917857-X (Version None)
Quarter: 2011Q4

REPORT INFORMATION
  Report Type: 
  Country: None (occurrence: None)
  Receive Date: 20111116
  Receipt Date: 20111104
  Transmission Date: 20120403
  Serious: Yes (Death, Hospitalization)
  Sender: FDA-Public Use
  Company Number: PHEH2011US07993

PATIENT
  Sex: Male

DRUGS (5)
  1. ASPIRIN [Concomitant]
  2. EXJADE [Suspect]
     Indication: MYELODYSPLASTIC SYNDROME
  3. HYDREA [Concomitant]
     Dosage: 1 G, UNK
  4. DIGOXIN [Concomitant]
     Dosage: 0.25 MG, UNK
  5. EXJADE [Suspect]
     Indication: IRON METABOLISM DISORDER
     Dosage: 1500 MG, QD
     Route: 048

REACTIONS (14)
  - THROMBOCYTOPENIA [None]
  - ACUTE MYELOID LEUKAEMIA [None]
  - ASTHENIA [None]
  - LACERATION [None]
  - BLOOD PRESSURE INCREASED [None]
  - BLOOD UREA INCREASED [None]
  - PAIN [None]
  - CONTUSION [None]
  - LEUKOCYTOSIS [None]
  - UPPER LIMB FRACTURE [None]
  - MYELODYSPLASTIC SYNDROME TRANSFORMATION [None]
  - ROAD TRAFFIC ACCIDENT [None]
  - ANAEMIA [None]
  - BLOOD BILIRUBIN INCREASED [None]
